FAERS Safety Report 7524737-0 (Version None)
Quarter: 2011Q2

REPORT INFORMATION
  Report Type: 
  Country: None (occurrence: None)
  Receive Date: 20110602
  Receipt Date: 20110602
  Transmission Date: 20111010
  Serious: Yes (Life-Threatening, Hospitalization)
  Sender: FDA-Public Use
  Company Number: None

PATIENT
  Age: 20 Year
  Sex: Female
  Weight: 55.3388 kg

DRUGS (1)
  1. DROSPERINONE/ETHINYL ESTRADIOL [Suspect]
     Indication: MENSTRUATION IRREGULAR
     Dosage: 1 TABLET ONCE PER DAY PO
     Route: 048
     Dates: start: 20110204, end: 20110525

REACTIONS (2)
  - PULMONARY HYPERTENSION [None]
  - PULMONARY EMBOLISM [None]
